FAERS Safety Report 10234543 (Version 3)
Quarter: 2014Q3

REPORT INFORMATION
  Report Type: Spontaneous
  Country: PL (occurrence: PL)
  Receive Date: 20140613
  Receipt Date: 20140714
  Transmission Date: 20150326
  Serious: Yes (Other)
  Sender: FDA-Public Use
  Company Number: PL-ROCHE-1416968

PATIENT
  Age: 58 Year
  Sex: Female
  Weight: 48.03 kg

DRUGS (8)
  1. ATIMOS [Concomitant]
     Active Substance: FORMOTEROL
  2. XOLAIR [Suspect]
     Active Substance: OMALIZUMAB
     Route: 058
     Dates: start: 20140418, end: 20140418
  3. ALVESCO [Concomitant]
     Active Substance: CICLESONIDE
  4. ATROVENT [Concomitant]
     Active Substance: IPRATROPIUM BROMIDE
  5. XOLAIR [Suspect]
     Active Substance: OMALIZUMAB
     Indication: ASTHMA
     Route: 058
     Dates: start: 20111024
  6. XOLAIR [Suspect]
     Active Substance: OMALIZUMAB
     Route: 058
     Dates: start: 20140515
  7. METYPRED [Concomitant]
     Active Substance: METHYLPREDNISOLONE
  8. ASMENOL [Concomitant]

REACTIONS (6)
  - Rash erythematous [Recovered/Resolved]
  - Pruritus [Unknown]
  - Papule [Recovering/Resolving]
  - Skin lesion [Recovered/Resolved]
  - Skin exfoliation [Recovering/Resolving]
  - Urticaria [Recovering/Resolving]

NARRATIVE: CASE EVENT DATE: 20140415
